FAERS Safety Report 13442924 (Version 4)
Quarter: 2018Q2

REPORT INFORMATION
  Report Type: Spontaneous
  Country: US (occurrence: US)
  Receive Date: 20170414
  Receipt Date: 20180504
  Transmission Date: 20180711
  Serious: Yes (Hospitalization)
  Sender: FDA-Public Use
  Company Number: US-TEVA-757576ACC

PATIENT
  Age: 65 Year
  Sex: Female

DRUGS (28)
  1. BACLOFEN. [Concomitant]
     Active Substance: BACLOFEN
     Route: 065
     Dates: start: 20170228, end: 20180219
  2. OMEPRAZOLE. [Concomitant]
     Active Substance: OMEPRAZOLE
     Dosage: STOP DATE : 17-OCT-2018
     Route: 065
     Dates: start: 20180420
  3. GABAPENTIN. [Concomitant]
     Active Substance: GABAPENTIN
     Route: 065
     Dates: start: 20180320
  4. METFORMIN [Concomitant]
     Active Substance: METFORMIN HYDROCHLORIDE
     Dates: start: 20170915, end: 20180314
  5. COPAXONE [Suspect]
     Active Substance: GLATIRAMER ACETATE
     Indication: MULTIPLE SCLEROSIS
     Route: 058
     Dates: start: 20170120
  6. LEVOTHYROXINE. [Concomitant]
     Active Substance: LEVOTHYROXINE
     Dosage: STOP DATE : 17-OCT-2018
     Route: 065
     Dates: start: 20180420
  7. HYDROCORTISONE. [Concomitant]
     Active Substance: HYDROCORTISONE
     Route: 065
     Dates: start: 20180314
  8. BACLOFEN. [Concomitant]
     Active Substance: BACLOFEN
     Dosage: STOP DATE : 16-SEP-2018
     Route: 065
     Dates: start: 20171114
  9. SERTRALINE [Concomitant]
     Active Substance: SERTRALINE HYDROCHLORIDE
     Dosage: STOP DATE : 01-OCT-2018
     Route: 065
     Dates: start: 20170228
  10. OMEPRAZOLE. [Concomitant]
     Active Substance: OMEPRAZOLE
     Dosage: STOP DATE : 07-JUL-2018
     Route: 065
     Dates: start: 20180108
  11. LISINOPRIL. [Concomitant]
     Active Substance: LISINOPRIL
     Dosage: STOP DATE : 16-SEP-2018
     Route: 065
     Dates: start: 20171003
  12. FLUTICASONE  SPR [Concomitant]
     Route: 065
     Dates: start: 20180316
  13. POLYTH GLYC POW3350 NF [Concomitant]
     Route: 065
     Dates: start: 20180119
  14. ATORVASTATIN [Concomitant]
     Active Substance: ATORVASTATIN
     Route: 065
     Dates: start: 20180112
  15. METFORMIN [Concomitant]
     Active Substance: METFORMIN HYDROCHLORIDE
     Dates: start: 20160420
  16. FLUTICASONE  SPR [Concomitant]
     Route: 065
     Dates: start: 20180314
  17. OMEPRAZOLE. [Concomitant]
     Active Substance: OMEPRAZOLE
     Route: 065
     Dates: start: 20180108
  18. DOXYCYCL HYC [Concomitant]
     Route: 065
     Dates: start: 20180316
  19. TAMIFLU [Concomitant]
     Active Substance: OSELTAMIVIR PHOSPHATE
     Route: 065
     Dates: start: 20180125
  20. METFORMIN [Concomitant]
     Active Substance: METFORMIN HYDROCHLORIDE
     Dosage: STOP DATE : 12-JUN-2018
     Dates: start: 20171214
  21. SERTRALINE [Concomitant]
     Active Substance: SERTRALINE HYDROCHLORIDE
     Dosage: STOP DATE : 01-OCT-2018
     Route: 065
     Dates: start: 20171207
  22. MORPHINE SUL [Concomitant]
     Active Substance: MORPHINE SULFATE
     Route: 065
     Dates: start: 20180320
  23. MORPHINE SUL [Concomitant]
     Active Substance: MORPHINE SULFATE
     Route: 065
     Dates: start: 20180312
  24. MORPHINE SUL [Concomitant]
     Active Substance: MORPHINE SULFATE
     Route: 065
     Dates: start: 20171214
  25. VOLTAREN [Concomitant]
     Active Substance: DICLOFENAC SODIUM
     Route: 065
     Dates: start: 20180314
  26. POLYTH GLYC POW3350 NF [Concomitant]
     Route: 065
     Dates: start: 20180206
  27. LEVOTHYROXINE. [Concomitant]
     Active Substance: LEVOTHYROXINE
     Dosage: STOP DATE : 05-JUL-2018
     Route: 065
     Dates: start: 20170703
  28. MORPHINE SUL [Concomitant]
     Active Substance: MORPHINE SULFATE
     Route: 065
     Dates: start: 20180112

REACTIONS (6)
  - Urinary tract infection [Recovered/Resolved]
  - Multiple sclerosis relapse [Not Recovered/Not Resolved]
  - Pyrexia [Not Recovered/Not Resolved]
  - Bronchitis [Not Recovered/Not Resolved]
  - Motor dysfunction [Not Recovered/Not Resolved]
  - Musculoskeletal stiffness [Not Recovered/Not Resolved]

NARRATIVE: CASE EVENT DATE: 2017
